FAERS Safety Report 6927722-2 (Version None)
Quarter: 2010Q3

REPORT INFORMATION
  Report Type: 
  Country: None (occurrence: None)
  Receive Date: 20100817
  Receipt Date: 20100721
  Transmission Date: 20110219
  Serious: Yes (Death, Hospitalization, Other)
  Sender: FDA-Public Use
  Company Number: JP-BAYER-201035060GPV

PATIENT
  Age: 51 Year
  Sex: Female
  Weight: 50 kg

DRUGS (5)
  1. FLUDARABINE PHOSPHATE [Suspect]
     Indication: BONE MARROW CONDITIONING REGIMEN
     Dosage: 20 MG/M^3 FOR 2 DAYS
     Route: 065
  2. CYCLOPHOSPHAMIDE [Suspect]
     Indication: BONE MARROW CONDITIONING REGIMEN
     Dosage: 30 MG/KG
     Route: 065
  3. R ATG [Suspect]
     Indication: BONE MARROW CONDITIONING REGIMEN
     Dosage: 2.5 MG/KG
     Route: 065
  4. LIPOSOMAL AMPHOTERICIN B [Concomitant]
     Indication: ANTIFUNGAL TREATMENT
     Route: 065
  5. VORICONAZOLE [Concomitant]
     Indication: ANTIFUNGAL TREATMENT

REACTIONS (4)
  - CARDIAC FAILURE CONGESTIVE [None]
  - CEREBROVASCULAR DISORDER [None]
  - FUNGAL INFECTION [None]
  - STAPHYLOCOCCAL INFECTION [None]
